FAERS Safety Report 5677959-8 (Version None)
Quarter: 2008Q1

REPORT INFORMATION
  Report Type: 
  Country: None (occurrence: None)
  Receive Date: 20080319
  Receipt Date: 20080310
  Transmission Date: 20080703
  Serious: Yes (Disabling)
  Sender: FDA-Public Use
  Company Number: 2008S1003974

PATIENT
  Age: 54 Year
  Sex: Female
  Weight: 85.7298 kg

DRUGS (1)
  1. CYCLOBENZAPRINE HYDROCHLORIDE [Suspect]
     Indication: MUSCULOSKELETAL STIFFNESS
     Dosage: 5 MG; AS NEEDED; ORAL
     Route: 048
     Dates: start: 20070501, end: 20070502

REACTIONS (9)
  - ABDOMINAL DISTENSION [None]
  - BACK INJURY [None]
  - BEDRIDDEN [None]
  - HEADACHE [None]
  - OEDEMA PERIPHERAL [None]
  - PAIN [None]
  - PARAESTHESIA [None]
  - SWELLING FACE [None]
  - TOOTH FRACTURE [None]
